FAERS Safety Report 23797286 (Version 2)
Quarter: 2024Q2

REPORT INFORMATION
  Report Type: Spontaneous
  Country: RO (occurrence: RO)
  Receive Date: 20240430
  Receipt Date: 20240516
  Transmission Date: 20240716
  Serious: Yes (Death, Hospitalization, Other)
  Sender: FDA-Public Use
  Company Number: RO-ABBVIE-5734092

PATIENT
  Age: 64 Year

DRUGS (8)
  1. VENETOCLAX [Suspect]
     Active Substance: VENETOCLAX
     Indication: Acute myeloid leukaemia
     Dosage: DAY 1
     Route: 048
  2. VENETOCLAX [Suspect]
     Active Substance: VENETOCLAX
     Indication: Acute myeloid leukaemia
     Dosage: DAY 2
     Route: 048
  3. VENETOCLAX [Suspect]
     Active Substance: VENETOCLAX
     Indication: Acute myeloid leukaemia
     Dosage: DAY 3 AND FOR ANOTHER 26 DAYS
     Route: 048
  4. VITAMIN B12 [Concomitant]
     Active Substance: CYANOCOBALAMIN
     Indication: Product used for unknown indication
     Dosage: 1TB/DAY WEEKLY, THEN 1TB/WEEK FOR LIFE ?FORM STRENGTH: 1000 MILLIGRAM
  5. ONDANSETRON HYDROCHLORIDE [Concomitant]
     Active Substance: ONDANSETRON HYDROCHLORIDE
     Indication: Product used for unknown indication
     Dosage: TIME INTERVAL: AS NECESSARY: FORM STRENGTH: 8 MILLIGRAM WHEN NEEDED
  6. Acifol [Concomitant]
     Indication: Product used for unknown indication
     Dosage: FORM STRENGTH: 5 MILLIGRAM ALL LIFE
  7. AZACITIDINE [Concomitant]
     Active Substance: AZACITIDINE
     Indication: Product used for unknown indication
     Route: 058
  8. ALLOPURINOL [Concomitant]
     Active Substance: ALLOPURINOL
     Indication: Product used for unknown indication
     Dosage: FORM STRENGTH: 300 MILLIGRAM IN THE NOON

REACTIONS (22)
  - Septic shock [Fatal]
  - Dysphagia [Unknown]
  - Pancytopenia [Unknown]
  - Vertigo [Unknown]
  - Neutropenia [Recovering/Resolving]
  - Tongue coated [Unknown]
  - Asthenia [Unknown]
  - Headache [Unknown]
  - Spinal column injury [Unknown]
  - Leukocytosis [Unknown]
  - COVID-19 [Unknown]
  - Jugular vein thrombosis [Unknown]
  - Acute myeloid leukaemia recurrent [Unknown]
  - Pharyngeal ulceration [Unknown]
  - Anaemia [Unknown]
  - Pneumonia pseudomonal [Unknown]
  - Pharyngeal necrosis [Unknown]
  - Pyrexia [Unknown]
  - Dysphonia [Unknown]
  - Neutrophilia [Unknown]
  - Disease complication [Unknown]
  - Fungal infection [Unknown]
